FAERS Safety Report 9054571 (Version 3)
Quarter: 2013Q2

REPORT INFORMATION
  Report Type: Report from Study
  Country: US (occurrence: US)
  Receive Date: 20130208
  Receipt Date: 20130424
  Transmission Date: 20140414
  Serious: Yes (Hospitalization)
  Sender: FDA-Public Use
  Company Number: US-MYLANLABS-2013S1002243

PATIENT
  Age: 4 Year
  Sex: Female
  Weight: 12.7 kg

DRUGS (15)
  1. MONOCLONAL ANTIBODIES [Suspect]
     Indication: NEUROBLASTOMA
     Route: 042
     Dates: start: 20121224, end: 20121227
  2. GRANULOCYTE MACROPHAGE COLONY STIM FACTOR [Suspect]
     Indication: NEUROBLASTOMA
     Route: 042
     Dates: start: 20121221, end: 20130103
  3. ISOTRETINOIN CAPSULES [Suspect]
     Indication: NEUROBLASTOMA
     Route: 048
     Dates: start: 20121231, end: 20130113
  4. ISOTRETINOIN CAPSULES [Suspect]
     Indication: OFF LABEL USE
     Route: 048
     Dates: start: 20121231, end: 20130113
  5. INTERLEUKIN-2 [Suspect]
     Indication: NEUROBLASTOMA
     Dates: start: 20121126, end: 20121129
  6. PARACETAMOL [Concomitant]
     Dosage: FEVER PROPHYLAXIS
     Route: 048
  7. ALBUMIN [Concomitant]
     Dosage: ALBUMIN REPLACEMENT
     Route: 042
  8. CYPROHEPTADINE [Concomitant]
     Dosage: APPETITE STIMULANT
     Route: 048
     Dates: start: 20121224
  9. DIPHENHYDRAMINE [Concomitant]
     Indication: PROPHYLAXIS
     Route: 042
     Dates: start: 20121224, end: 20121228
  10. FLUCONAZOLE [Concomitant]
     Indication: PROPHYLAXIS
     Route: 042
     Dates: start: 20121221
  11. FUROSEMIDE [Concomitant]
     Dosage: DRUG USE FOR UNKNOWN INDICATION
     Route: 042
     Dates: start: 20121226, end: 20121227
  12. MORPHINE [Concomitant]
     Indication: PAIN
     Dosage: PATIENT CONTROLLED ANALGESIC (PCA)
     Route: 042
     Dates: start: 20121224, end: 20121228
  13. NALOXONE [Concomitant]
     Indication: PROPHYLAXIS
     Route: 041
     Dates: start: 20121224, end: 20121227
  14. MACROGOL [Concomitant]
     Dosage: LAXATIVE
     Route: 048
     Dates: start: 20121224, end: 20121228
  15. SULFAMETHOXAZOLE [Concomitant]
     Indication: PROPHYLAXIS
     Route: 048
     Dates: start: 20121228

REACTIONS (1)
  - Hypercalcaemia [Recovered/Resolved]
